FAERS Safety Report 6663410-8 (Version None)
Quarter: 2010Q2

REPORT INFORMATION
  Report Type: 
  Country: None (occurrence: None)
  Receive Date: 20100401
  Receipt Date: 20090619
  Transmission Date: 20101027
  Serious: Yes (Hospitalization)
  Sender: FDA-Public Use
  Company Number: JP-BRISTOL-MYERS SQUIBB COMPANY-14675201

PATIENT
  Age: 78 Year
  Sex: Female

DRUGS (1)
  1. IRBETAN [Suspect]
     Indication: HYPERTENSION
     Route: 048
     Dates: start: 20090501

REACTIONS (1)
  - BLOOD GLUCOSE DECREASED [None]
